FAERS Safety Report 4899351-6 (Version None)
Quarter: 2006Q1

REPORT INFORMATION
  Report Type: 
  Country: None (occurrence: None)
  Receive Date: 20060131
  Receipt Date: 20060118
  Transmission Date: 20060701
  Serious: Yes (Other)
  Sender: FDA-Public Use
  Company Number: 2005159687

PATIENT
  Age: 98 Year
  Sex: Female
  Weight: 65 kg

DRUGS (6)
  1. TOLTERODINE TARTRATE [Suspect]
     Indication: URINARY INCONTINENCE
     Dosage: 2 MG (1 MG, 2 IN 1 D), ORAL
     Route: 048
     Dates: start: 20050914, end: 20051114
  2. CILAZAPRIL (CILAZAPRIL) [Concomitant]
  3. METHYLDOPA [Concomitant]
  4. FUROSEMIDE [Concomitant]
  5. ISOSORBIDE (ISOSORBIDE) [Concomitant]
  6. ACETAMINOPHEN [Concomitant]

REACTIONS (1)
  - PEMPHIGOID [None]
